FAERS Safety Report 24238371 (Version 1)
Quarter: 2024Q3

REPORT INFORMATION
  Report Type: Report from Study
  Country: ES (occurrence: ES)
  Receive Date: 20240822
  Receipt Date: 20240822
  Transmission Date: 20241017
  Serious: Yes (Hospitalization, Other)
  Sender: MYLAN
  Company Number: ES-JNJFOC-20240815302

PATIENT
  Age: 4 Decade
  Sex: Female
  Weight: 67 kg

DRUGS (10)
  1. REVATIO [Suspect]
     Active Substance: SILDENAFIL CITRATE
     Indication: Pulmonary arterial hypertension
     Dosage: 30 MILLIGRAM
     Route: 048
     Dates: start: 20210601, end: 20210909
  2. REVATIO [Suspect]
     Active Substance: SILDENAFIL CITRATE
     Dosage: 60 MILLIGRAM
     Route: 048
     Dates: start: 20210909, end: 20240208
  3. SELEXIPAG [Suspect]
     Active Substance: SELEXIPAG
     Indication: Pulmonary arterial hypertension
     Dosage: UNK
     Route: 048
     Dates: start: 20230320
  4. ADEMPAS [Suspect]
     Active Substance: RIOCIGUAT
     Indication: Pulmonary arterial hypertension
     Dosage: 2.5 MILLIGRAM
     Route: 048
     Dates: start: 20240208, end: 20240401
  5. MACITENTAN [Suspect]
     Active Substance: MACITENTAN
     Indication: Pulmonary arterial hypertension
     Dosage: 10 MILLIGRAM, QD
     Route: 048
     Dates: start: 20211126
  6. DIGOXIN [Concomitant]
     Active Substance: DIGOXIN
     Indication: Atrial fibrillation
     Dosage: UNK
     Route: 048
     Dates: start: 20180708
  7. ACENOCOUMAROL [Concomitant]
     Active Substance: ACENOCOUMAROL
     Indication: Mitral valve disease
     Dosage: UNK
     Route: 048
     Dates: start: 19920511
  8. ALLOPURINOL [Concomitant]
     Active Substance: ALLOPURINOL
     Indication: Hyperuricaemia
     Dosage: UNK
     Route: 048
     Dates: start: 20190715
  9. TORSEMIDE [Concomitant]
     Active Substance: TORSEMIDE
     Indication: Nasal congestion
     Dosage: UNK
     Route: 048
     Dates: start: 20180611
  10. LEVOTHYROXINE [Concomitant]
     Active Substance: LEVOTHYROXINE\LEVOTHYROXINE SODIUM
     Indication: Hyperthyroidism
     Dosage: UNK
     Route: 048
     Dates: start: 20180716

REACTIONS (3)
  - Pulmonary arterial hypertension [Unknown]
  - Pulmonary oedema [Unknown]
  - Hypotension [Unknown]

NARRATIVE: CASE EVENT DATE: 20240226
